FAERS Safety Report 7810480-7 (Version None)
Quarter: 2011Q4

REPORT INFORMATION
  Report Type: 
  Country: None (occurrence: None)
  Receive Date: 20111012
  Receipt Date: 20111003
  Transmission Date: 20120403
  Serious: Yes (Hospitalization, Other)
  Sender: FDA-Public Use
  Company Number: US-ASTRAZENECA-2011SE56180

PATIENT
  Age: 59 Year
  Sex: Female

DRUGS (3)
  1. TOPROL-XL [Suspect]
     Route: 048
  2. ARIMIDEX [Suspect]
     Route: 048
  3. LEXAPRO [Concomitant]

REACTIONS (3)
  - NEOPLASM MALIGNANT [None]
  - MEDIASTINAL MASS [None]
  - BREAST CANCER METASTATIC [None]
